FAERS Safety Report 11580136 (Version 1)
Quarter: 2015Q3

REPORT INFORMATION
  Report Type: Spontaneous
  Country: US (occurrence: US)
  Receive Date: 20150916
  Receipt Date: 20150916
  Transmission Date: 20151125
  Serious: No
  Sender: FDA-Public Use
  Company Number: US-ELI_LILLY_AND_COMPANY-US200804007491

PATIENT
  Sex: Female

DRUGS (4)
  1. FORTEO [Suspect]
     Active Substance: TERIPARATIDE
     Indication: OSTEOPOROSIS
     Dates: start: 200803
  2. VITAMIN D [Concomitant]
     Active Substance: CHOLECALCIFEROL
  3. EVISTA [Concomitant]
     Active Substance: RALOXIFENE HYDROCHLORIDE
  4. CALTRATE [Concomitant]
     Active Substance: CALCIUM CARBONATE

REACTIONS (2)
  - Nausea [Not Recovered/Not Resolved]
  - Vitamin D decreased [Unknown]

NARRATIVE: CASE EVENT DATE: 200804
